FAERS Safety Report 12206335 (Version 1)
Quarter: 2016Q1

REPORT INFORMATION
  Report Type: Spontaneous
  Country: US (occurrence: US)
  Receive Date: 20160324
  Receipt Date: 20160324
  Transmission Date: 20160526
  Serious: No
  Sender: FDA-Public Use
  Company Number: US-BRISTOL-MYERS SQUIBB COMPANY-BMS-2016-019928

PATIENT
  Age: 57 Year
  Sex: Male
  Weight: 85.26 kg

DRUGS (1)
  1. KENALOG-40 [Suspect]
     Active Substance: TRIAMCINOLONE ACETONIDE
     Indication: INTERVERTEBRAL DISC DISORDER
     Dosage: 80 MG, UNK
     Route: 008
     Dates: start: 20160217

REACTIONS (7)
  - Confusional state [Unknown]
  - Gastroenteritis viral [Unknown]
  - Pain [Recovered/Resolved]
  - Insomnia [Unknown]
  - Nasopharyngitis [Unknown]
  - Paraesthesia [Unknown]
  - Off label use [Unknown]

NARRATIVE: CASE EVENT DATE: 20160217
